FAERS Safety Report 6462507-5 (Version None)
Quarter: 2009Q4

REPORT INFORMATION
  Report Type: 
  Country: None (occurrence: None)
  Receive Date: 20091130
  Receipt Date: 20091117
  Transmission Date: 20100525
  Serious: Yes (Death, Hospitalization)
  Sender: FDA-Public Use
  Company Number: ES-ELI_LILLY_AND_COMPANY-ES200911004527

PATIENT
  Age: 78 Year
  Sex: Male

DRUGS (7)
  1. FORTEO [Suspect]
     Indication: OSTEOPOROSIS
     Dosage: 20 UG, UNK
     Route: 058
     Dates: start: 20090101, end: 20091022
  2. ALDACTONE [Concomitant]
     Dosage: UNK, UNKNOWN
  3. SEGURIL [Concomitant]
     Dosage: UNK, UNKNOWN
  4. FOLIC ACID [Concomitant]
     Dosage: UNK, UNKNOWN
  5. ADOLONTA [Concomitant]
     Dosage: UNK, UNKNOWN
  6. KONAKION [Concomitant]
     Dosage: UNK, UNKNOWN
  7. OPTOVIT [Concomitant]
     Dosage: UNK, UNKNOWN

REACTIONS (3)
  - DYSURIA [None]
  - PNEUMONIA [None]
  - RESPIRATORY FAILURE [None]
